FAERS Safety Report 19254000 (Version 1)
Quarter: 2021Q2

REPORT INFORMATION
  Report Type: Spontaneous
  Country: US (occurrence: US)
  Receive Date: 20210513
  Receipt Date: 20210513
  Transmission Date: 20210717
  Serious: Yes (Hospitalization)
  Sender: FDA-Public Use
  Company Number: US-FRESENIUS KABI-FK202102551

PATIENT
  Age: 74 Year
  Sex: Male
  Weight: 117.93 kg

DRUGS (8)
  1. IRINOTECAN [Suspect]
     Active Substance: IRINOTECAN
     Indication: ADENOCARCINOMA PANCREAS
     Dosage: IRINOTECAN LIPOSOME
     Route: 065
     Dates: end: 20210126
  2. CALCIUM FOLINATE [Suspect]
     Active Substance: LEUCOVORIN CALCIUM
     Dosage: LEUCOVORIN CAL INJ 200MG MYL 1 ?VIAL, MFR NAME: MYLAN INSTITUTIONAL INC
     Route: 065
  3. FLUOROURACIL (MANUFACTURER UNKNOWN) [Suspect]
     Active Substance: FLUOROURACIL
     Indication: ADENOCARCINOMA PANCREAS
     Dosage: 5FU
     Route: 065
     Dates: end: 20210128
  4. CALCIUM FOLINATE [Suspect]
     Active Substance: LEUCOVORIN CALCIUM
     Dosage: LEUCOVOR INJ 350MG/VLWW50MLHIK@ ?VIAL, MFR NAME: HIKMA PHARMACEUTICALS USA
     Route: 065
  5. CALCIUM FOLINATE [Suspect]
     Active Substance: LEUCOVORIN CALCIUM
     Dosage: LEUCOVOR CAL INJ 350MG MYL 1@?VIAL, MFR NAME: MYLAN INSTITUTIONAL INC.@
     Route: 065
  6. CALCIUM FOLINATE [Suspect]
     Active Substance: LEUCOVORIN CALCIUM
     Dosage: LEUCOVOR CAL INJ 50MG WEST 10ML ?VIAL, MFR NAME: HIKMA PHARMACEUTICALS USA
     Route: 065
  7. CALCIUM FOLINATE [Suspect]
     Active Substance: LEUCOVORIN CALCIUM
     Dosage: 400MG/M2
     Route: 042
     Dates: start: 20210112, end: 20210126
  8. CALCIUM FOLINATE [Suspect]
     Active Substance: LEUCOVORIN CALCIUM
     Dosage: LEUCOVOR CAL 350MG SIC 30ML @ ?VIAL, MFR NAME: TEVA PHARMACEUTICALS @
     Route: 065

REACTIONS (2)
  - Diarrhoea [Unknown]
  - Blood creatinine increased [Recovered/Resolved]

NARRATIVE: CASE EVENT DATE: 20210112
